FAERS Safety Report 4821584-5 (Version None)
Quarter: 2005Q4

REPORT INFORMATION
  Report Type: 
  Country: None (occurrence: None)
  Receive Date: 20051103
  Receipt Date: 20051103
  Transmission Date: 20060501
  Serious: Yes (Hospitalization)
  Sender: FDA-Public Use
  Company Number: None

PATIENT
  Sex: Male
  Weight: 71.2147 kg

DRUGS (11)
  1. PROCRIT [Suspect]
     Indication: ANAEMIA
     Dosage: 90000 U SQ WKLY
     Route: 058
     Dates: start: 20050810, end: 20050928
  2. GEMZAR [Suspect]
     Indication: PANCREATIC CARCINOMA
     Dosage: 1000 MG/M2 IV WKLY
     Route: 042
     Dates: start: 20050720, end: 20050914
  3. TARCEVA [Suspect]
     Indication: PANCREATIC CARCINOMA
     Dosage: 150 MG PO QD
     Route: 048
     Dates: start: 20050921
  4. TYLENOL (CAPLET) [Concomitant]
  5. LOVENOX [Concomitant]
  6. MEGACE [Concomitant]
  7. ALDOSTERONE [Concomitant]
  8. OXYCODONE [Concomitant]
  9. BENZAPRAZAZOL [Concomitant]
  10. TARCEVA [Concomitant]
  11. ZOLAZEPAM [Concomitant]

REACTIONS (4)
  - ASTHENIA [None]
  - DEEP VEIN THROMBOSIS [None]
  - HYPOCOAGULABLE STATE [None]
  - THERAPY NON-RESPONDER [None]
